FAERS Safety Report 9878652 (Version 2)
Quarter: 2014Q1

REPORT INFORMATION
  Report Type: Spontaneous
  Country: None (occurrence: US)
  Receive Date: 20140206
  Receipt Date: 20140206
  Transmission Date: 20141002
  Serious: No
  Sender: FDA-Public Use
  Company Number: US-ALLERGAN-1308236US

PATIENT
  Sex: Female

DRUGS (2)
  1. BOTOX COSMETIC [Suspect]
     Indication: SKIN WRINKLING
     Dosage: 25 UNITS, SINGLE
     Route: 030
     Dates: start: 20130523, end: 20130523
  2. BENACOR [Concomitant]
     Indication: HYPERTENSION

REACTIONS (4)
  - Eyelid oedema [Recovering/Resolving]
  - Eyelid oedema [Recovering/Resolving]
  - Drug hypersensitivity [Not Recovered/Not Resolved]
  - Off label use [Unknown]
